FAERS Safety Report 10010789 (Version 1)
Quarter: 2014Q1

REPORT INFORMATION
  Report Type: Spontaneous
  Country: US (occurrence: US)
  Receive Date: 20140314
  Receipt Date: 20140314
  Transmission Date: 20141002
  Serious: No
  Sender: FDA-Public Use
  Company Number: US-DRREDDYS-USA/USA/13/0028867

PATIENT
  Age: 51 Year
  Sex: Female
  Weight: 70.37 kg

DRUGS (2)
  1. CETIRIZINE [Suspect]
     Route: 048
     Dates: start: 20130312, end: 20130315
  2. MULTIVITAMINS [Concomitant]
     Indication: PRODUCT USED FOR UNKNOWN INDICATION
     Route: 065

REACTIONS (1)
  - Dyspnoea [Unknown]
